FAERS Safety Report 10727786 (Version 2)
Quarter: 2015Q1

REPORT INFORMATION
  Report Type: Spontaneous
  Country: SG (occurrence: SG)
  Receive Date: 20150121
  Receipt Date: 20150203
  Transmission Date: 20150721
  Serious: Yes (Other)
  Sender: FDA-Public Use
  Company Number: SG-BAYER-2015-006799

PATIENT
  Sex: Male
  Weight: 70.9 kg

DRUGS (1)
  1. XOFIGO [Suspect]
     Active Substance: RADIUM RA-223 DICHLORIDE
     Dosage: NUMBER OF COMPLETED TREATMENT: 5.

REACTIONS (2)
  - Rib fracture [None]
  - Asthenia [None]
